FAERS Safety Report 9735378 (Version 1)
Quarter: 2013Q4

REPORT INFORMATION
  Report Type: Spontaneous
  Country: US (occurrence: None)
  Receive Date: 20131205
  Receipt Date: 20131205
  Transmission Date: 20140711
  Serious: Yes (Disabling, Other)
  Sender: FDA-Public Use
  Company Number: None

PATIENT
  Age: 94 Year
  Sex: Female
  Weight: 57.61 kg

DRUGS (9)
  1. ATORVASTATIN [Suspect]
     Indication: BLOOD CHOLESTEROL INCREASED
     Dosage: 20 MG?1 TABLET BY MOUTH EVERY DAY ?ONCE PER DAY FOR SEVERAL YEARS.?BY MOUTH?SEVERAL YEARS?
     Route: 048
     Dates: end: 20130916
  2. AMLODIPINE-BENAZEPRIL [Concomitant]
  3. LEVOTHYROXINE [Concomitant]
  4. DONEPEZIL [Concomitant]
  5. VITAMIN D3 [Concomitant]
  6. ASPIRIN [Concomitant]
  7. VITAMIN B12 [Concomitant]
  8. GENTLE IRON (IRON BSGLYCINATE) [Concomitant]
  9. CENZYME Q10 [Concomitant]

REACTIONS (6)
  - Amnesia [None]
  - Confusional state [None]
  - Treatment noncompliance [None]
  - Inappropriate schedule of drug administration [None]
  - Activities of daily living impaired [None]
  - Disorientation [None]
